FAERS Safety Report 16397448 (Version 1)
Quarter: 2019Q2

REPORT INFORMATION
  Report Type: Report from Study
  Country: JP (occurrence: JP)
  Receive Date: 20190606
  Receipt Date: 20190606
  Transmission Date: 20190711
  Serious: Yes (Other)
  Sender: FDA-Public Use
  Company Number: JP-TEVA-2019-JP-1057867

PATIENT
  Age: 77 Year
  Sex: Male
  Weight: 67.1 kg

DRUGS (25)
  1. SOLDEM 3A INJECTION [Concomitant]
     Indication: ELECTROLYTE SUBSTITUTION THERAPY
     Route: 065
     Dates: start: 20161201, end: 20161204
  2. KIDMIN INJECTION [Concomitant]
     Indication: EATING DISORDER
     Route: 065
     Dates: start: 20161213, end: 20161221
  3. CEFTRIAXONE SODIUM HYDRATE INJECTION [Concomitant]
     Indication: PNEUMONIA
     Route: 065
     Dates: start: 20161224, end: 20161229
  4. FILGRASTIM BS INJ. 150MCG SYRINGE [Suspect]
     Active Substance: FILGRASTIM
     Indication: MYELODYSPLASTIC SYNDROME
     Dosage: 150 UG/M2 DAILY;
     Route: 058
     Dates: start: 20170116, end: 20170119
  5. FILGRASTIM BS INJ. 150MCG SYRINGE [Suspect]
     Active Substance: FILGRASTIM
     Dosage: 75 UG/M2 DAILY;
     Route: 058
     Dates: start: 20170128, end: 20170128
  6. ACELIO INJECTION [Concomitant]
     Indication: PYREXIA
     Route: 065
     Dates: start: 20161208, end: 20161208
  7. GLUCOSE INJECTION [Concomitant]
     Active Substance: DEXTROSE
     Indication: EATING DISORDER
     Route: 065
     Dates: start: 20161219, end: 20170110
  8. VITAMEDIN INJECTION [Concomitant]
     Indication: EATING DISORDER
     Route: 065
     Dates: start: 20161224, end: 20161229
  9. ELNEOPA NO.2 INJECTION [Concomitant]
     Indication: EATING DISORDER
     Route: 065
     Dates: start: 20170111, end: 20170119
  10. FILGRASTIM BS INJ. 150MCG SYRINGE [Suspect]
     Active Substance: FILGRASTIM
     Dosage: 75 UG/KG DAILY;
     Route: 058
     Dates: start: 20170120, end: 20170126
  11. FILGRASTIM BS INJ. 150MCG SYRINGE [Suspect]
     Active Substance: FILGRASTIM
     Dosage: 75 UG/M2 DAILY;
     Route: 058
     Dates: start: 20170130
  12. ZOSYN INJECTION [Concomitant]
     Indication: PNEUMONIA
     Route: 065
     Dates: start: 20161201, end: 20161205
  13. SOLYUGEN F INJECTION [Concomitant]
     Indication: METABOLIC ACIDOSIS
     Route: 065
     Dates: start: 20161201, end: 20161204
  14. MEROPENEM HYDRATE INJECTION [Concomitant]
     Indication: PROPHYLAXIS
     Route: 065
     Dates: start: 20161205, end: 20161216
  15. VIDAZA INJECTION [Concomitant]
     Indication: MYELODYSPLASTIC SYNDROME
     Route: 065
     Dates: start: 20161110, end: 20161118
  16. MINOCYCLINE HYDROCHLORIDE INJECTION [Concomitant]
     Indication: PNEUMONIA
     Route: 065
     Dates: start: 20161229, end: 20170111
  17. ALOXI INJECTION [Concomitant]
     Indication: PROPHYLAXIS
     Route: 065
     Dates: start: 20161110, end: 20161110
  18. BFLUID INJECTION [Concomitant]
     Active Substance: AMINO ACIDS\DEXTROSE\ELECTROLYTES NOS\VITAMINS
     Indication: HYPOPHAGIA
     Route: 065
     Dates: start: 20161208, end: 20161210
  19. HICALIQ INJECTION [Concomitant]
     Indication: EATING DISORDER
     Route: 065
     Dates: start: 20161213, end: 20161221
  20. FILGRASTIM BS INJ. 150MCG SYRINGE [Suspect]
     Active Substance: FILGRASTIM
     Indication: INFANTILE GENETIC AGRANULOCYTOSIS
     Dosage: 150 UG/M2 DAILY;
     Route: 058
     Dates: start: 20161205, end: 20170111
  21. FILGRASTIM BS INJ. 150MCG SYRINGE [Suspect]
     Active Substance: FILGRASTIM
     Dosage: 75 UG/M2 DAILY;
     Route: 058
     Dates: start: 20170207, end: 20170214
  22. VITAJECT INJECTION [Concomitant]
     Indication: EATING DISORDER
     Route: 065
     Dates: start: 20161213, end: 20161221
  23. KCL CORRECTIVE INJECTION [Concomitant]
     Indication: EATING DISORDER
     Route: 065
     Dates: start: 20161219, end: 20171125
  24. FUROSEMIDE INJECTION [Concomitant]
     Active Substance: FUROSEMIDE
     Indication: OEDEMA
     Route: 065
     Dates: start: 20161225, end: 20170114
  25. ELNEOPA NO.1 INJECTION [Concomitant]
     Indication: EATING DISORDER
     Route: 065
     Dates: start: 20161230, end: 20170110

REACTIONS (2)
  - Acute kidney injury [Recovering/Resolving]
  - Schizophrenia [Recovering/Resolving]

NARRATIVE: CASE EVENT DATE: 20161210
